FAERS Safety Report 10502474 (Version 1)
Quarter: 2014Q4

REPORT INFORMATION
  Report Type: Spontaneous
  Country: JP (occurrence: JP)
  Receive Date: 20141007
  Receipt Date: 20141007
  Transmission Date: 20150528
  Serious: Yes (Other)
  Sender: FDA-Public Use
  Company Number: JP-PFIZER INC-2014272859

PATIENT
  Age: 7 Decade
  Sex: Male
  Weight: 65 kg

DRUGS (6)
  1. SEROQUEL [Suspect]
     Active Substance: QUETIAPINE FUMARATE
     Indication: SUICIDE ATTEMPT
     Dosage: 30 TABLETS OF 25 MG
     Route: 048
  2. EURODIN [Suspect]
     Active Substance: ESTAZOLAM
     Indication: SUICIDE ATTEMPT
     Dosage: 30 TABLETS OF 2 MG
     Route: 048
  3. CELECOX [Suspect]
     Active Substance: CELECOXIB
     Indication: SUICIDE ATTEMPT
     Dosage: 2 TABLETS OF 100MG
     Route: 048
  4. ROHYPNOL [Suspect]
     Active Substance: FLUNITRAZEPAM
     Indication: SUICIDE ATTEMPT
     Dosage: 10 TABLETS OF 1 MG
     Route: 048
  5. VEGETAMIN A [Suspect]
     Active Substance: CHLORPROMAZINE HYDROCHLORIDE\PHENOBARBITAL\PROMETHAZINE
     Indication: SUICIDE ATTEMPT
     Dosage: 38 DF
     Route: 048
  6. DEPAS [Suspect]
     Active Substance: ETIZOLAM
     Indication: SUICIDE ATTEMPT
     Dosage: 43 MG, UNK
     Route: 048

REACTIONS (4)
  - Intentional overdose [Unknown]
  - Sedation [Unknown]
  - Pneumonia [Unknown]
  - Toxicity to various agents [Unknown]
